FAERS Safety Report 15962883 (Version 2)
Quarter: 2019Q2

REPORT INFORMATION
  Report Type: Report from Study
  Country: KR (occurrence: KR)
  Receive Date: 20190214
  Receipt Date: 20190408
  Transmission Date: 20190711
  Serious: No
  Sender: FDA-Public Use
  Company Number: KR-B.I. PHARMACEUTICALS,INC./RIDGEFIELD-2019-BI-005647

PATIENT
  Age: 61 Year
  Sex: Male
  Weight: 60 kg

DRUGS (15)
  1. ARONAMIN C PLUS [Concomitant]
     Indication: VITAMIN SUPPLEMENTATION
     Route: 048
     Dates: start: 20161007
  2. LYRICA [Concomitant]
     Active Substance: PREGABALIN
     Indication: MYOCLONUS
     Route: 048
     Dates: start: 20160722
  3. NAFUROL [Concomitant]
     Indication: PROPHYLAXIS
     Route: 048
     Dates: start: 20170209
  4. RIVOTRIL [Concomitant]
     Active Substance: CLONAZEPAM
     Indication: DYSKINESIA
     Route: 048
     Dates: start: 20151001
  5. DUOCET [Concomitant]
     Indication: HEADACHE
     Route: 048
     Dates: start: 20180813
  6. LOWPIROL S [Concomitant]
     Indication: DYSLIPIDAEMIA
     Route: 048
     Dates: start: 20180417
  7. NEWHYALDROP [Concomitant]
     Indication: PROPHYLAXIS
     Dosage: DAILY DOSE: 6 DROPS
     Route: 050
     Dates: start: 20151222
  8. TRAJENTA [Concomitant]
     Active Substance: LINAGLIPTIN
     Indication: TYPE 2 DIABETES MELLITUS
     Route: 048
     Dates: start: 20160130
  9. DEPAKOTE ER [Concomitant]
     Active Substance: DIVALPROEX SODIUM
     Indication: MYOCLONUS
     Dosage: ER TAB
     Route: 048
     Dates: start: 20160722
  10. DURATEARS [Concomitant]
     Active Substance: MINERAL OIL EMULSION\PETROLATUM
     Indication: PROPHYLAXIS
     Dosage: DAILY DOSE: 0.5CM
     Route: 050
     Dates: start: 20170117
  11. ANAPROX [Concomitant]
     Active Substance: NAPROXEN SODIUM
     Indication: HEADACHE
     Route: 048
     Dates: start: 20181231, end: 20190128
  12. JARDIANCE [Suspect]
     Active Substance: EMPAGLIFLOZIN
     Indication: TYPE 2 DIABETES MELLITUS
     Route: 048
     Dates: start: 20190102, end: 20190131
  13. METFORMIN [Concomitant]
     Active Substance: METFORMIN HYDROCHLORIDE
     Indication: TYPE 2 DIABETES MELLITUS
     Dosage: XR TAB
     Route: 048
     Dates: start: 20180717
  14. STOGAR [Concomitant]
     Active Substance: LAFUTIDINE
     Indication: GASTRITIS
     Route: 048
     Dates: start: 20160429
  15. QRETIN [Concomitant]
     Indication: DIABETIC RETINOPATHY
     Route: 048
     Dates: start: 20150521

REACTIONS (1)
  - Pollakiuria [Recovered/Resolved]

NARRATIVE: CASE EVENT DATE: 201901
